FAERS Safety Report 5483135-4 (Version None)
Quarter: 2007Q4

REPORT INFORMATION
  Report Type: 
  Country: None (occurrence: None)
  Receive Date: 20071005
  Receipt Date: 20070925
  Transmission Date: 20080405
  Serious: Yes (Death, Other)
  Sender: FDA-Public Use
  Company Number: 2007JP004484

PATIENT
  Age: 58 Year
  Sex: Male

DRUGS (2)
  1. PROGRAF [Suspect]
     Indication: CORD BLOOD TRANSPLANT THERAPY
  2. GANCICLOVIR [Concomitant]

REACTIONS (4)
  - ALTERED STATE OF CONSCIOUSNESS [None]
  - ENCEPHALITIS HERPES [None]
  - PANCYTOPENIA [None]
  - SEPTIC SHOCK [None]
